FAERS Safety Report 7892964 (Version 4)
Quarter: 2012Q4

REPORT INFORMATION
  Report Type: 
  Country: BR (occurrence: BR)
  Receive Date: 20110411
  Receipt Date: 20121019
  Transmission Date: 20130627
  Serious: Yes (Other)
  Sender: FDA-Public Use
  Company Number: BR-US-EMD SERONO, INC.-7012104

PATIENT
  Age: 62 None
  Sex: Female

DRUGS (4)
  1. REBIF [Suspect]
     Indication: RELAPSING-REMITTING MULTIPLE SCLEROSIS
     Route: 058
     Dates: start: 20020306
  2. DIOSMIN [Concomitant]
     Indication: PRODUCT USED FOR UNKNOWN INDICATION
  3. TRIPTANOL [Concomitant]
     Indication: PRODUCT USED FOR UNKNOWN INDICATION
  4. CAPTOPRIL [Concomitant]
     Indication: PRODUCT USED FOR UNKNOWN INDICATION

REACTIONS (3)
  - Wound necrosis [Recovering/Resolving]
  - Wound infection [Recovering/Resolving]
  - Oedema peripheral [Recovered/Resolved]
